FAERS Safety Report 5807322-8 (Version None)
Quarter: 2008Q3

REPORT INFORMATION
  Report Type: 
  Country: None (occurrence: None)
  Receive Date: 20080711
  Receipt Date: 20080702
  Transmission Date: 20090109
  Serious: Yes (Hospitalization, Other)
  Sender: FDA-Public Use
  Company Number: GB-ABBOTT-08P-167-0459078-00

PATIENT
  Age: 28 Year
  Sex: Male
  Weight: 62 kg

DRUGS (5)
  1. HUMIRA [Suspect]
     Indication: ANKYLOSING SPONDYLITIS
     Route: 058
     Dates: start: 20071117
  2. ASACAL [Concomitant]
     Indication: COLITIS
     Route: 048
  3. DOMPERIDONE [Concomitant]
     Indication: DRUG USE FOR UNKNOWN INDICATION
     Route: 048
  4. OMEPRAZOLE [Concomitant]
     Indication: DRUG USE FOR UNKNOWN INDICATION
     Route: 048
  5. PREDNISOLONE [Concomitant]
     Indication: COLITIS
     Route: 048

REACTIONS (5)
  - ANAEMIA [None]
  - BLOOD ALBUMIN DECREASED [None]
  - HAEMATURIA [None]
  - HYPOGAMMAGLOBULINAEMIA [None]
  - PYURIA [None]
